FAERS Safety Report 7732457-2 (Version None)
Quarter: 2011Q3

REPORT INFORMATION
  Report Type: 
  Country: None (occurrence: None)
  Receive Date: 20110906
  Receipt Date: 20110823
  Transmission Date: 20111222
  Serious: Yes (Other)
  Sender: FDA-Public Use
  Company Number: CA-ELI_LILLY_AND_COMPANY-CA201108006905

PATIENT
  Sex: Male

DRUGS (16)
  1. METOPROLOL [Concomitant]
  2. LASIX [Concomitant]
  3. AVAPRO [Concomitant]
  4. DILTIAZEM [Concomitant]
  5. ZYPREXA [Suspect]
     Dosage: 5 MG, QD
  6. DIAZEPAM [Concomitant]
  7. VENLAFAXINE HYDROCHLORIDE [Concomitant]
  8. SERTRALINE HYDROCHLORIDE [Concomitant]
  9. QUETIAPINE [Concomitant]
  10. RAMIPRIL [Concomitant]
  11. HYDROCHLOROTHIAZIDE [Concomitant]
  12. ZYPREXA ZYDIS [Suspect]
     Dosage: 5 MG, UNKNOWN
  13. NORTRIPTYLINE HCL [Concomitant]
  14. NORVASC [Concomitant]
  15. ZYPREXA [Suspect]
     Dosage: 2.5 MG, UNKNOWN
  16. ZYPREXA [Suspect]
     Dosage: 10 MG, UNKNOWN

REACTIONS (11)
  - MYOCARDIAL INFARCTION [None]
  - SINUS TACHYCARDIA [None]
  - ANAEMIA [None]
  - POST PROCEDURAL INFECTION [None]
  - HYPERTENSION [None]
  - TYPE 1 DIABETES MELLITUS [None]
  - HYPOALBUMINAEMIA [None]
  - ELECTROCARDIOGRAM QT PROLONGED [None]
  - CATARACT [None]
  - URINARY TRACT INFECTION [None]
  - SKIN INFECTION [None]
